FAERS Safety Report 13667946 (Version 1)
Quarter: 2017Q2

REPORT INFORMATION
  Report Type: Spontaneous
  Country: US (occurrence: US)
  Receive Date: 20170619
  Receipt Date: 20170619
  Transmission Date: 20170830
  Serious: Yes (Other)
  Sender: FDA-Public Use
  Company Number: None

PATIENT
  Age: 59 Year
  Sex: Female
  Weight: 90 kg

DRUGS (7)
  1. ALPHA LIPOIC [Concomitant]
  2. LISINOPRIL. [Concomitant]
     Active Substance: LISINOPRIL
  3. CHROMIUM PICOLINATE [Concomitant]
     Active Substance: CHROMIUM PICOLINATE
  4. CALCIUM  WITH D [Concomitant]
     Active Substance: CALCIUM\VITAMIN D
  5. VITAMIN C [Concomitant]
     Active Substance: ASCORBIC ACID
  6. CIPRO [Suspect]
     Active Substance: CIPROFLOXACIN HYDROCHLORIDE
     Indication: CYSTITIS
     Dates: start: 20100601
  7. ESTRATEST [Concomitant]
     Active Substance: ESTROGENS, ESTERIFIED\METHYLTESTOSTERONE

REACTIONS (3)
  - Pain [None]
  - Tendonitis [None]
  - Gait disturbance [None]

NARRATIVE: CASE EVENT DATE: 20100601
